FAERS Safety Report 19428054 (Version 6)
Quarter: 2021Q4

REPORT INFORMATION
  Report Type: Spontaneous
  Country: HU (occurrence: HU)
  Receive Date: 20210617
  Receipt Date: 20211108
  Transmission Date: 20220303
  Serious: Yes (Hospitalization)
  Sender: FDA-Public Use
  Company Number: NVSC2021HU118886

PATIENT
  Age: 71 Year
  Sex: Male

DRUGS (22)
  1. PANTOPRAZOLE [Suspect]
     Active Substance: PANTOPRAZOLE
     Indication: Respiratory failure
     Dosage: UNK
     Route: 065
  2. PANTOPRAZOLE [Suspect]
     Active Substance: PANTOPRAZOLE
     Indication: Endotracheal intubation
  3. AZITHROMYCIN MONOHYDRATE [Suspect]
     Active Substance: AZITHROMYCIN MONOHYDRATE
     Indication: COVID-19 treatment
     Dosage: UNK
     Route: 065
  4. PIPERACILLIN AND TAZOBACTAM [Suspect]
     Active Substance: PIPERACILLIN SODIUM\TAZOBACTAM SODIUM
     Indication: COVID-19 treatment
     Dosage: UNK
     Route: 065
  5. SUFENTANIL [Suspect]
     Active Substance: SUFENTANIL
     Indication: Endotracheal intubation
     Dosage: UNK
     Route: 065
  6. SUFENTANIL [Suspect]
     Active Substance: SUFENTANIL
     Indication: Respiratory failure
  7. PROPOFOL [Suspect]
     Active Substance: PROPOFOL
     Indication: Endotracheal intubation
     Dosage: UNK
     Route: 065
  8. PROPOFOL [Suspect]
     Active Substance: PROPOFOL
     Indication: Respiratory failure
  9. MIDAZOLAM HYDROCHLORIDE [Suspect]
     Active Substance: MIDAZOLAM HYDROCHLORIDE
     Indication: Seizure
     Dosage: UNK (PRE-FILLED SYRINGE)
     Route: 065
  10. MIDAZOLAM HYDROCHLORIDE [Suspect]
     Active Substance: MIDAZOLAM HYDROCHLORIDE
     Indication: Endotracheal intubation
  11. MIDAZOLAM HYDROCHLORIDE [Suspect]
     Active Substance: MIDAZOLAM HYDROCHLORIDE
     Indication: Respiratory failure
  12. AMOXICILLIN\CLAVULANIC ACID [Suspect]
     Active Substance: AMOXICILLIN\CLAVULANIC ACID
     Indication: COVID-19 treatment
     Dosage: UNK
     Route: 065
  13. UNSPECIFIED INGREDIENT [Suspect]
     Active Substance: UNSPECIFIED INGREDIENT
     Indication: COVID-19 treatment
     Dosage: UNK
     Route: 065
  14. METHYLPREDNISOLONE [Suspect]
     Active Substance: METHYLPREDNISOLONE
     Indication: Endotracheal intubation
     Dosage: UNK
     Route: 065
  15. METHYLPREDNISOLONE [Suspect]
     Active Substance: METHYLPREDNISOLONE
     Indication: Respiratory failure
  16. FAVIPIRAVIR [Suspect]
     Active Substance: FAVIPIRAVIR
     Indication: COVID-19 treatment
     Dosage: UNK
     Route: 065
  17. FAVIPIRAVIR [Suspect]
     Active Substance: FAVIPIRAVIR
     Indication: Antiviral treatment
  18. SUCCINYLCHOLINE [Suspect]
     Active Substance: SUCCINYLCHOLINE
     Indication: Respiratory failure
     Dosage: UNK
     Route: 065
  19. SUCCINYLCHOLINE [Suspect]
     Active Substance: SUCCINYLCHOLINE
     Indication: Endotracheal intubation
  20. NOREPINEPHRINE [Suspect]
     Active Substance: NOREPINEPHRINE
     Indication: Cardiovascular insufficiency
     Dosage: UNK
  21. NOREPINEPHRINE [Suspect]
     Active Substance: NOREPINEPHRINE
     Indication: Promotion of peripheral circulation
  22. NOREPINEPHRINE [Suspect]
     Active Substance: NOREPINEPHRINE
     Indication: Supportive care

REACTIONS (1)
  - Rash maculo-papular [Recovered/Resolved]
